FAERS Safety Report 16903833 (Version 1)
Quarter: 2019Q4

REPORT INFORMATION
  Report Type: Spontaneous
  Country: US (occurrence: US)
  Receive Date: 20191009
  Receipt Date: 20191009
  Transmission Date: 20200122
  Serious: No
  Sender: FDA-Public Use
  Company Number: None

PATIENT
  Sex: Male

DRUGS (5)
  1. FOLIC ACID. [Concomitant]
     Active Substance: FOLIC ACID
  2. LISINOPRIL. [Concomitant]
     Active Substance: LISINOPRIL
  3. MELOXICAM. [Concomitant]
     Active Substance: MELOXICAM
  4. METHOTREXATE. [Concomitant]
     Active Substance: METHOTREXATE
  5. COSENTYX [Suspect]
     Active Substance: SECUKINUMAB
     Indication: PRODUCT USED FOR UNKNOWN INDICATION
     Dosage: ?          OTHER FREQUENCY:MONTHLY;?
     Route: 058
     Dates: start: 20180807

REACTIONS (1)
  - Anorectal disorder [None]
